FAERS Safety Report 9604300 (Version 1)
Quarter: 2013Q4

REPORT INFORMATION
  Report Type: Report from Study
  Country: PK (occurrence: PK)
  Receive Date: 20131008
  Receipt Date: 20131008
  Transmission Date: 20140711
  Serious: Yes (Death)
  Sender: FDA-Public Use
  Company Number: PHHY2013PK112159

PATIENT
  Age: 65 Year
  Sex: Female

DRUGS (3)
  1. ACLASTA [Suspect]
     Indication: OSTEOPOROSIS
     Dosage: ONCE YEAR
     Route: 042
     Dates: start: 20121021
  2. CALCIUM [Concomitant]
     Indication: OSTEOPOROSIS
     Dosage: QD
     Dates: start: 20121016, end: 20130212
  3. PANADOL [Concomitant]
     Indication: PYREXIA
     Dosage: UNK UKN, QD
     Route: 048
     Dates: start: 20121005, end: 20121008

REACTIONS (1)
  - Hepatic failure [Fatal]
